FAERS Safety Report 16054570 (Version 1)
Quarter: 2019Q1

REPORT INFORMATION
  Report Type: Report from Study
  Country: GB (occurrence: GB)
  Receive Date: 20190309
  Receipt Date: 20190309
  Transmission Date: 20190418
  Serious: Yes (Other)
  Sender: FDA-Public Use
  Company Number: PHHY2018GB187321

PATIENT
  Sex: Female

DRUGS (1)
  1. COSENTYX [Suspect]
     Active Substance: SECUKINUMAB
     Indication: PSORIASIS
     Dosage: 300 MG, QW
     Route: 058
     Dates: start: 20181023

REACTIONS (4)
  - Inappropriate schedule of product administration [Unknown]
  - Abdominal discomfort [Recovered/Resolved with Sequelae]
  - Colitis [Unknown]
  - Malaise [Recovered/Resolved with Sequelae]
